FAERS Safety Report 7586369-8 (Version None)
Quarter: 2011Q2

REPORT INFORMATION
  Report Type: 
  Country: None (occurrence: None)
  Receive Date: 20110630
  Receipt Date: 20110630
  Transmission Date: 20111010
  Serious: Yes (Life-Threatening, Hospitalization, Other)
  Sender: FDA-Public Use
  Company Number: None

PATIENT
  Sex: Female
  Weight: 83.0083 kg

DRUGS (3)
  1. TREXIMET [Suspect]
     Indication: MIGRAINE
     Dosage: 1 TABLET ONSE + NO MORE TWO TABLETS IN 24 HOURS AM/PM
     Dates: start: 20110605
  2. TREXIMET [Suspect]
     Indication: MIGRAINE
     Dosage: 1 TABLET ONSE + NO MORE TWO TABLETS IN 24 HOURS AM/PM
     Dates: start: 20110604
  3. TREXIMET [Suspect]
     Indication: MIGRAINE
     Dosage: 1 TABLET ONSE + NO MORE TWO TABLETS IN 24 HOURS AM/PM
     Dates: start: 20110603

REACTIONS (11)
  - ABDOMINAL PAIN UPPER [None]
  - OEDEMA PERIPHERAL [None]
  - ULCER HAEMORRHAGE [None]
  - CONVULSION [None]
  - MIGRAINE [None]
  - DIARRHOEA [None]
  - DRUG HYPERSENSITIVITY [None]
  - CONDITION AGGRAVATED [None]
  - VOMITING [None]
  - CHEST PAIN [None]
  - VISION BLURRED [None]
